FAERS Safety Report 6274989-2 (Version None)
Quarter: 2009Q3

REPORT INFORMATION
  Report Type: 
  Country: None (occurrence: None)
  Receive Date: 20090721
  Receipt Date: 20090713
  Transmission Date: 20100115
  Serious: Yes (Hospitalization)
  Sender: FDA-Public Use
  Company Number: AU-ASTRAZENECA-2009SE04614

PATIENT
  Age: 49 Year
  Sex: Female

DRUGS (7)
  1. SEROQUEL [Suspect]
     Indication: AFFECTIVE DISORDER
     Route: 048
  2. CATAPRES [Concomitant]
  3. LAMICTAL [Concomitant]
  4. PROGYNOVA [Concomitant]
  5. SERETIDE 250/25 MDI [Concomitant]
  6. TEMAZE [Concomitant]
  7. TRIPRIM [Concomitant]

REACTIONS (4)
  - DYSPHAGIA [None]
  - HYPOAESTHESIA ORAL [None]
  - MUSCULOSKELETAL STIFFNESS [None]
  - PARAESTHESIA ORAL [None]
